FAERS Safety Report 9908631 (Version 1)
Quarter: 2014Q1

REPORT INFORMATION
  Report Type: Spontaneous
  Country: US (occurrence: None)
  Receive Date: 20140214
  Receipt Date: 20140214
  Transmission Date: 20141002
  Serious: Yes (Hospitalization)
  Sender: FDA-Public Use
  Company Number: None

PATIENT
  Age: 84 Year
  Sex: Female
  Weight: 56.3 kg

DRUGS (7)
  1. COUMADIN [Suspect]
     Indication: ATRIAL FIBRILLATION
     Dosage: CHRONIC
     Route: 048
  2. CIPRO [Suspect]
     Indication: URINARY TRACT INFECTION
     Dosage: RECENT
     Route: 048
  3. DIGOXIN [Concomitant]
  4. MVI [Concomitant]
  5. VERAPAMIL [Concomitant]
  6. METOPROLOL [Concomitant]
  7. LASIX [Concomitant]

REACTIONS (4)
  - International normalised ratio increased [None]
  - Cardiac failure congestive [None]
  - Hypophagia [None]
  - Drug interaction [None]
